FAERS Safety Report 14538702 (Version 3)
Quarter: 2018Q1

REPORT INFORMATION
  Report Type: Spontaneous
  Country: US (occurrence: US)
  Receive Date: 20180216
  Receipt Date: 20180322
  Transmission Date: 20180509
  Serious: Yes (Hospitalization, Other)
  Sender: FDA-Public Use
  Company Number: US-009507513-1802USA006161

PATIENT
  Age: 59 Year
  Sex: Male
  Weight: 100 kg

DRUGS (6)
  1. PRINIVIL [Concomitant]
     Active Substance: LISINOPRIL
  2. DULERA [Suspect]
     Active Substance: FORMOTEROL FUMARATE DIHYDRATE\MOMETASONE FUROATE
     Indication: CHRONIC OBSTRUCTIVE PULMONARY DISEASE
     Dosage: 1 DF, BID
     Route: 055
     Dates: start: 201612
  3. XANAX [Concomitant]
     Active Substance: ALPRAZOLAM
  4. VALIUM [Concomitant]
     Active Substance: DIAZEPAM
  5. ATROVENT [Concomitant]
     Active Substance: IPRATROPIUM BROMIDE
  6. DULERA [Suspect]
     Active Substance: FORMOTEROL FUMARATE DIHYDRATE\MOMETASONE FUROATE
     Dosage: 1 DF, BID
     Route: 055

REACTIONS (2)
  - Meniscus injury [Not Recovered/Not Resolved]
  - Cerebrovascular accident [Not Recovered/Not Resolved]

NARRATIVE: CASE EVENT DATE: 20171012
